FAERS Safety Report 25203422 (Version 2)
Quarter: 2025Q2

REPORT INFORMATION
  Report Type: Spontaneous
  Country: US (occurrence: US)
  Receive Date: 20250416
  Receipt Date: 20250618
  Transmission Date: 20250717
  Serious: No
  Sender: LUNDBECK
  Company Number: US-LUNDBECK-DKLU4013058

PATIENT
  Age: 11 Month
  Sex: Female
  Weight: 8.3007 kg

DRUGS (5)
  1. SABRIL [Suspect]
     Active Substance: VIGABATRIN
     Indication: Infantile spasms
     Dosage: DAY 1 TO DAY 3
     Route: 048
     Dates: start: 202503
  2. SABRIL [Suspect]
     Active Substance: VIGABATRIN
     Dosage: DAY 4 TO DAY 6
     Route: 048
  3. SABRIL [Suspect]
     Active Substance: VIGABATRIN
     Dosage: DAY 7 AND THEREAFTER
     Route: 048
  4. SABRIL [Suspect]
     Active Substance: VIGABATRIN
     Dosage: 5 MILLILITRE
     Route: 048
  5. VITAMIN D3 [Concomitant]
     Active Substance: CHOLECALCIFEROL
     Indication: Product used for unknown indication

REACTIONS (2)
  - Intentional underdose [Unknown]
  - Drug intolerance [Unknown]
